FAERS Safety Report 13457737 (Version 2)
Quarter: 2017Q2

REPORT INFORMATION
  Report Type: Report from Study
  Country: CA (occurrence: CA)
  Receive Date: 20170419
  Receipt Date: 20170605
  Transmission Date: 20170830
  Serious: Yes (Death)
  Sender: FDA-Public Use
  Company Number: CA-KADMON PHARMACEUTICALS, LLC-KAD-201704-00446

PATIENT
  Age: 55 Year
  Weight: 71 kg

DRUGS (2)
  1. RIBAVIRIN. [Suspect]
     Active Substance: RIBAVIRIN
     Indication: CHRONIC HEPATITIS C
     Dosage: TABLET
     Route: 048
     Dates: start: 20170117, end: 20170401
  2. HOLKIRA PAK [Suspect]
     Active Substance: DASABUVIR\OMBITASVIR\PARITAPREVIR\RITONAVIR
     Indication: CHRONIC HEPATITIS C
     Dosage: 2 TABLETS 12.5 MG/75 MG/50 MG, ONCE A DAY AND 1 TABLET 250 MG TWICE DAILY
     Route: 048
     Dates: start: 20170117, end: 20170401

REACTIONS (1)
  - Electrolyte imbalance [Fatal]

NARRATIVE: CASE EVENT DATE: 20170401
